FAERS Safety Report 8611283-6 (Version None)
Quarter: 2012Q3

REPORT INFORMATION
  Report Type: 
  Country: None (occurrence: None)
  Receive Date: 20120822
  Receipt Date: 20120816
  Transmission Date: 20120928
  Serious: Yes (Hospitalization)
  Sender: FDA-Public Use
  Company Number: US-ELI_LILLY_AND_COMPANY-US201205008953

PATIENT
  Sex: Female

DRUGS (4)
  1. VALIUM [Concomitant]
     Dosage: 2 MG, UNK
  2. ASPIRIN [Concomitant]
  3. ANTIHYPERTENSIVES [Concomitant]
  4. EFFIENT [Suspect]
     Indication: STENT PLACEMENT
     Dosage: 5 MG, QD
     Dates: start: 20120225

REACTIONS (7)
  - FLUID RETENTION [None]
  - DYSPNOEA [None]
  - GAIT DISTURBANCE [None]
  - VISUAL ACUITY REDUCED [None]
  - PALPITATIONS [None]
  - THINKING ABNORMAL [None]
  - ASTHENIA [None]
